FAERS Safety Report 8559087-7 (Version None)
Quarter: 2012Q3

REPORT INFORMATION
  Report Type: 
  Country: None (occurrence: None)
  Receive Date: 20120802
  Receipt Date: 20120726
  Transmission Date: 20120928
  Serious: No
  Sender: FDA-Public Use
  Company Number: US-BIOGENIDEC-2012BI027963

PATIENT
  Age: 60 Year
  Sex: Female

DRUGS (2)
  1. TYSABRI [Suspect]
     Indication: MULTIPLE SCLEROSIS
     Route: 042
     Dates: start: 20080103, end: 20090917
  2. TYSABRI [Suspect]
     Route: 042
     Dates: start: 20100930

REACTIONS (3)
  - ANAEMIA [None]
  - DYSPNOEA [None]
  - URINARY TRACT INFECTION [None]
